FAERS Safety Report 8616695-2 (Version None)
Quarter: 2012Q3

REPORT INFORMATION
  Report Type: 
  Country: None (occurrence: None)
  Receive Date: 20120823
  Receipt Date: 20120802
  Transmission Date: 20120928
  Serious: No
  Sender: FDA-Public Use
  Company Number: US-009507513-1208USA001793

PATIENT

DRUGS (20)
  1. ALLEGRA [Concomitant]
  2. VICTRELIS [Suspect]
     Indication: HEPATITIS C
     Dosage: UNK
     Dates: start: 20120717
  3. CLONIDINE [Concomitant]
  4. PREDNISONE (+) THALIDOMIDE [Concomitant]
  5. ISOSORBIDE [Concomitant]
  6. PEG-INTRON [Suspect]
     Dosage: UNK
     Dates: start: 20120626
  7. ASTELIN [Concomitant]
  8. LEVOTHYROXINE SODIUM [Concomitant]
  9. BYSTOLIC [Concomitant]
  10. ESTER-C [Concomitant]
  11. RIBASPHERE [Suspect]
  12. HYDROXYZINE [Concomitant]
  13. SPIRIVA [Concomitant]
  14. PREVACID [Concomitant]
  15. GLUCOSAMINE [Concomitant]
  16. LOSARTAN POTASSIUM [Concomitant]
  17. KRILL OIL [Concomitant]
  18. MAGNESIUM (UNSPECIFIED) [Concomitant]
  19. SYMBICORT [Concomitant]
  20. CALCIUM (UNSPECIFIED) [Concomitant]

REACTIONS (4)
  - HAEMOGLOBIN DECREASED [None]
  - FATIGUE [None]
  - HAEMATOCRIT DECREASED [None]
  - FEELING ABNORMAL [None]
